FAERS Safety Report 24979409 (Version 1)
Quarter: 2025Q1

REPORT INFORMATION
  Report Type: Spontaneous
  Country: GB (occurrence: GB)
  Receive Date: 20250218
  Receipt Date: 20250218
  Transmission Date: 20250409
  Serious: Yes (Other)
  Sender: AUROBINDO
  Company Number: GB-MHRA-TPP1416940C10459439YC1738321311760

PATIENT
  Age: 53 Year
  Sex: Male
  Weight: 83 kg

DRUGS (8)
  1. LISINOPRIL [Suspect]
     Active Substance: LISINOPRIL
     Indication: Ill-defined disorder
     Route: 065
     Dates: start: 20241108, end: 20250101
  2. MICONAZOLE [Concomitant]
     Active Substance: MICONAZOLE
     Indication: Ill-defined disorder
     Dosage: UNK UNK, TWO TIMES A DAY
     Route: 065
     Dates: start: 20241101, end: 20241108
  3. BENZALKONIUM CHLORIDE\DIMETHICONE\HYDROCORTISONE\NYSTATIN [Concomitant]
     Active Substance: BENZALKONIUM CHLORIDE\DIMETHICONE\HYDROCORTISONE\NYSTATIN
     Indication: Ill-defined disorder
     Dosage: UNK UNK, 3 TIMES A DAY (APPLY 3 TIMES/DAY UNTIL THE LESIONS HAVE HEALED )
     Route: 065
     Dates: start: 20241101, end: 20241115
  4. CETIRIZINE [Concomitant]
     Active Substance: CETIRIZINE HYDROCHLORIDE
     Indication: Ill-defined disorder
     Route: 065
     Dates: start: 20241115, end: 20241215
  5. CHLORHEXIDINE GLUCONATE [Concomitant]
     Active Substance: CHLORHEXIDINE GLUCONATE
     Indication: Ill-defined disorder
     Route: 065
     Dates: start: 20241115, end: 20241213
  6. MINERAL OIL\PARAFFIN [Concomitant]
     Active Substance: MINERAL OIL\PARAFFIN
     Indication: Ill-defined disorder
     Route: 065
     Dates: start: 20241115, end: 20241213
  7. AMLODIPINE [Concomitant]
     Active Substance: AMLODIPINE BESYLATE
     Indication: Ill-defined disorder
     Dosage: 1 DOSAGE FORM, ONCE A DAY (TAKE ONE DAILY (TOTAL DOSE 7.5 MG ONC E IN A DAY )  )
     Route: 065
     Dates: start: 20250131
  8. ATORVASTATIN [Concomitant]
     Active Substance: ATORVASTATIN
     Indication: Ill-defined disorder
     Route: 065
     Dates: start: 20240515

REACTIONS (1)
  - Angioedema [Recovered/Resolved]

NARRATIVE: CASE EVENT DATE: 20241216
